FAERS Safety Report 14456833 (Version 1)
Quarter: 2018Q1

REPORT INFORMATION
  Report Type: Spontaneous
  Country: US (occurrence: US)
  Receive Date: 20180126
  Receipt Date: 20180126
  Transmission Date: 20180509
  Serious: Yes (Death, Hospitalization)
  Sender: FDA-Public Use
  Company Number: None

PATIENT
  Age: 67 Year
  Sex: Male
  Weight: 122.56 kg

DRUGS (2)
  1. ABIRATERONE ACETATE. [Suspect]
     Active Substance: ABIRATERONE ACETATE
     Dates: end: 20180114
  2. PREDNISONE. [Suspect]
     Active Substance: PREDNISONE
     Dates: end: 20180114

REACTIONS (4)
  - Cellulitis [None]
  - Atrial fibrillation [None]
  - Lethargy [None]
  - Blood creatinine increased [None]

NARRATIVE: CASE EVENT DATE: 20180118
